FAERS Safety Report 13411132 (Version 3)
Quarter: 2023Q4

REPORT INFORMATION
  Report Type: Spontaneous
  Country: US (occurrence: US)
  Receive Date: 20170406
  Receipt Date: 20231220
  Transmission Date: 20240110
  Serious: No
  Sender: FDA-Public Use
  Company Number: US-JNJFOC-20170306638

PATIENT
  Sex: Male

DRUGS (7)
  1. RISPERDAL [Suspect]
     Active Substance: RISPERIDONE
     Indication: Bipolar disorder
     Dosage: VARYING DOSES OF 0.5 AND 1 MG
     Route: 048
  2. RISPERDAL [Suspect]
     Active Substance: RISPERIDONE
     Indication: Behaviour disorder
  3. RISPERDAL CONSTA [Suspect]
     Active Substance: RISPERIDONE
     Indication: Bipolar disorder
     Route: 030
  4. RISPERDAL CONSTA [Suspect]
     Active Substance: RISPERIDONE
     Indication: Behaviour disorder
  5. RISPERDAL CONSTA [Suspect]
     Active Substance: RISPERIDONE
  6. RISPERDAL CONSTA [Suspect]
     Active Substance: RISPERIDONE
  7. INVEGA [Suspect]
     Active Substance: PALIPERIDONE
     Indication: Product used for unknown indication
     Route: 048

REACTIONS (1)
  - Injury [Unknown]
